FAERS Safety Report 26041479 (Version 1)
Quarter: 2025Q4

REPORT INFORMATION
  Report Type: Spontaneous
  Country: US (occurrence: US)
  Receive Date: 20251113
  Receipt Date: 20251113
  Transmission Date: 20260117
  Serious: Yes (Other)
  Sender: BLUEPRINT MEDICINES
  Company Number: US-Blueprint Medicines Corporation-2025-AER-02416

PATIENT
  Age: 76 Year
  Sex: Female

DRUGS (1)
  1. AYVAKIT [Suspect]
     Active Substance: AVAPRITINIB
     Indication: Soft tissue sarcoma
     Route: 065
     Dates: start: 20230412

REACTIONS (3)
  - Cataract [Unknown]
  - Eye swelling [Recovering/Resolving]
  - Eyelid thickening [Unknown]
